FAERS Safety Report 8515301 (Version 3)
Quarter: 2013Q1

REPORT INFORMATION
  Report Type: Spontaneous
  Country: US (occurrence: None)
  Receive Date: 20120323
  Receipt Date: 20121016
  Transmission Date: 20140127
  Serious: Yes (Hospitalization)
  Sender: FDA-Public Use
  Company Number: 2012031623

PATIENT
  Age: 54 Year
  Sex: Female
  Weight: 97.07 kg

DRUGS (15)
  1. HIZENTRA [Suspect]
     Indication: IMMUNODEFICIENCY COMMON VARIABLE
     Dosage: (80 ML) VIA 5-6 SITES OVER 1-2 HOURS
     Route: 058
     Dates: start: 20120131
  2. MAXALT [Concomitant]
  3. COREG [Concomitant]
  4. TRAMADOL HYDROCHLORIDE [Concomitant]
  5. GABAPENTIN (GABAPENTIN) [Concomitant]
  6. MAGNESIUM OXIDE (MAGNESIUM OXIDE) [Concomitant]
  7. VITAMIN D [Concomitant]
  8. FLEXERIL [Concomitant]
  9. PROZAC [Concomitant]
  10. DEPAKOTE (VALPROATE SEMISODIUM) [Concomitant]
  11. CLONAZEPAM (CLONAZEPAM) (CLONAZEPAM) [Concomitant]
  12. ACETAMINOPHEN (PARACETAMOL) [Concomitant]
  13. DIPHENHYDRAMINE (DIPHENHYDRAMINE) [Concomitant]
  14. LIDOCAINE (LIDOCAINE) [Concomitant]
  15. EPI-PEN (EPINEPHRINE HYDROCHLORIDE) [Concomitant]

REACTIONS (5)
  - Fatigue [None]
  - Influenza like illness [None]
  - Convulsion [None]
  - Drug dose omission [None]
  - Behcet^s syndrome [None]
